FAERS Safety Report 13926109 (Version 2)
Quarter: 2017Q4

REPORT INFORMATION
  Report Type: Report from Study
  Country: ES (occurrence: ES)
  Receive Date: 20170831
  Receipt Date: 20171102
  Transmission Date: 20180320
  Serious: Yes (Hospitalization)
  Sender: FDA-Public Use
  Company Number: ES-EISAI MEDICAL RESEARCH-EC-2017-030796

PATIENT
  Age: 62 Year
  Sex: Female
  Weight: 63.5 kg

DRUGS (13)
  1. PQR309 [Suspect]
     Active Substance: INVESTIGATIONAL PRODUCT
     Indication: BREAST CANCER
     Route: 048
     Dates: start: 20170607, end: 2017
  2. ERIBULIN [Suspect]
     Active Substance: ERIBULIN
     Indication: BREAST CANCER
     Route: 041
     Dates: start: 20170530, end: 2017
  3. PRIMPERAN [Concomitant]
     Active Substance: METOCLOPRAMIDE HYDROCHLORIDE
  4. FENTANYL. [Concomitant]
     Active Substance: FENTANYL
  5. PARACETAMOL [Concomitant]
     Active Substance: ACETAMINOPHEN
  6. DEXMETHASONE [Concomitant]
     Active Substance: DEXAMETHASONE
  7. BISOPROLOL [Concomitant]
     Active Substance: BISOPROLOL
  8. PQR309 [Suspect]
     Active Substance: INVESTIGATIONAL PRODUCT
     Route: 048
     Dates: start: 2017, end: 20170811
  9. METAMIZOLE [Concomitant]
     Active Substance: METAMIZOLE
  10. NOLOTIL (METAMIZOLE MAGNESIUM) [Concomitant]
     Active Substance: METAMIZOLE MAGNESIUM
  11. ERIBULIN [Suspect]
     Active Substance: ERIBULIN
     Route: 041
     Dates: start: 2017, end: 20170803
  12. METOCLOPRAMIDE HYDROCHLORIDE. [Concomitant]
     Active Substance: METOCLOPRAMIDE HYDROCHLORIDE
  13. RANITIDINE. [Concomitant]
     Active Substance: RANITIDINE

REACTIONS (2)
  - Vomiting [Recovered/Resolved]
  - General physical health deterioration [Unknown]

NARRATIVE: CASE EVENT DATE: 20170819
